FAERS Safety Report 5838696-X (Version None)
Quarter: 2008Q3

REPORT INFORMATION
  Report Type: 
  Country: None (occurrence: None)
  Receive Date: 20080808
  Receipt Date: 20080804
  Transmission Date: 20090109
  Serious: Yes (Other)
  Sender: FDA-Public Use
  Company Number: B0496646A

PATIENT
  Age: 69 Year
  Sex: Female
  Weight: 55 kg

DRUGS (5)
  1. ARIXTRA [Suspect]
     Indication: THROMBOSIS PROPHYLAXIS
     Dosage: 2.5MG PER DAY
     Route: 058
     Dates: start: 20071111, end: 20071116
  2. FLUMARIN [Suspect]
     Indication: INFECTION PROPHYLAXIS
     Dosage: 1G TWICE PER DAY
     Route: 042
     Dates: start: 20071105, end: 20071108
  3. UNASYN [Suspect]
     Indication: INFECTION PROPHYLAXIS
     Dosage: 1.5G TWICE PER DAY
     Route: 042
     Dates: start: 20071109, end: 20071111
  4. LINTACIN S [Suspect]
     Indication: INFECTION PROPHYLAXIS
     Dosage: 300MG TWICE PER DAY
     Route: 042
     Dates: start: 20071112, end: 20071116
  5. OZEX [Concomitant]
     Indication: INFECTION PROPHYLAXIS
     Dosage: 450MG PER DAY
     Route: 048
     Dates: start: 20071117, end: 20071123

REACTIONS (2)
  - HEPATIC FUNCTION ABNORMAL [None]
  - PLATELET COUNT INCREASED [None]
